APPROVED DRUG PRODUCT: AGENERASE
Active Ingredient: AMPRENAVIR
Strength: 15MG/ML **Federal Register determination that product was not discontinued or withdrawn for safety or effectiveness reasons**
Dosage Form/Route: SOLUTION;ORAL
Application: N021039 | Product #001
Applicant: GLAXOSMITHKLINE
Approved: Apr 15, 1999 | RLD: Yes | RS: No | Type: DISCN